FAERS Safety Report 17696754 (Version 1)
Quarter: 2020Q2

REPORT INFORMATION
  Report Type: Spontaneous
  Country: JP (occurrence: JP)
  Receive Date: 20200423
  Receipt Date: 20200423
  Transmission Date: 20200714
  Serious: Yes (Life-Threatening, Other)
  Sender: FDA-Public Use
  Company Number: JP-INGENUS PHARMACEUTICALS, LLC-2020INF000070

PATIENT
  Age: 78 Year
  Sex: Male
  Weight: 60.1 kg

DRUGS (6)
  1. CISPLATIN. [Suspect]
     Active Substance: CISPLATIN
     Indication: METASTASES TO LYMPH NODES
     Dosage: 70 MILLIGRAM/SQ. METER, DAY 1
     Route: 065
  2. 5-FLUOROURACIL [Suspect]
     Active Substance: FLUOROURACIL
     Dosage: 800 MILLIGRAM/SQ. METER, DAY 1-5, BI-WEEKLY
     Route: 065
  3. 5-FLUOROURACIL [Suspect]
     Active Substance: FLUOROURACIL
     Indication: METASTASES TO LYMPH NODES
     Dosage: 700 MILLIGRAM/SQ. METER, DAY 1-5
     Route: 065
  4. DOCETAXEL. [Suspect]
     Active Substance: DOCETAXEL
     Dosage: 30 MILLIGRAM/SQ. METER, DAY 1/15, BI-WEEKLY
     Route: 065
  5. DOCETAXEL. [Suspect]
     Active Substance: DOCETAXEL
     Indication: METASTASES TO LYMPH NODES
     Dosage: 70 MILLIGRAM/SQ. METER, DAY 1
     Route: 065
  6. CISPLATIN. [Suspect]
     Active Substance: CISPLATIN
     Dosage: 80 MILLIGRAM/SQ. METER, DAY 1, BI-WEEKLY
     Route: 065

REACTIONS (4)
  - Neutropenia [Unknown]
  - Diarrhoea [Unknown]
  - Febrile neutropenia [Unknown]
  - Pneumonia aspiration [Unknown]
